FAERS Safety Report 8349296-4 (Version None)
Quarter: 2012Q2

REPORT INFORMATION
  Report Type: 
  Country: None (occurrence: None)
  Receive Date: 20120510
  Receipt Date: 20120509
  Transmission Date: 20120825
  Serious: Yes (Other)
  Sender: FDA-Public Use
  Company Number: PHEH2010US00516

PATIENT
  Sex: Female

DRUGS (34)
  1. OXYCONTIN [Concomitant]
  2. ZOLOFT [Concomitant]
     Dosage: 1 DF, QD
     Route: 048
  3. FENTANYL CITRATE [Concomitant]
     Dosage: 1 DF, EVERY 3 DAYS
     Route: 061
  4. CLARINEX-D [Concomitant]
  5. CYTOXAN [Concomitant]
  6. DULCOLAX [Concomitant]
  7. SOLU-MEDROL [Concomitant]
  8. ADRIAMYCIN PFS [Concomitant]
  9. FOSAMAX [Concomitant]
  10. CHEMOTHERAPEUTICS [Concomitant]
     Dosage: UNK UKN, UNK
     Dates: end: 20080901
  11. VENTOLIN [Concomitant]
     Dosage: 2 PUFFS, PRN
  12. ADVAIR DISKUS 100/50 [Concomitant]
     Dosage: UNK UKN, BID
  13. LOVENOX [Concomitant]
     Dosage: 80 MG, UNK
     Route: 048
  14. CORDARONE [Concomitant]
     Route: 042
  15. ZOMETA [Suspect]
     Route: 042
  16. SINGULAIR [Concomitant]
     Dosage: 1 DF, PRN
     Route: 048
  17. DELTASONE [Concomitant]
  18. TAXOL [Concomitant]
  19. ELAVIL [Concomitant]
  20. FLOVENT [Concomitant]
  21. ACCOLATE [Concomitant]
  22. TAMOXIFEN CITRATE [Concomitant]
  23. MOTRIN [Concomitant]
     Dosage: UNK UKN, Q6H
  24. PROTONIX [Concomitant]
  25. AROMASIN [Concomitant]
  26. DILAUDID [Concomitant]
     Route: 042
  27. ASTELIN [Concomitant]
  28. SEREVENT [Concomitant]
  29. AMOXICILLIN [Concomitant]
  30. NARCAN [Concomitant]
     Dosage: 0.4 MG, UNK
     Route: 042
  31. CLINDAMYCIN [Concomitant]
  32. BENADRYL [Concomitant]
  33. DOPAMINE HCL [Concomitant]
     Route: 042
  34. ALLEGRA [Concomitant]

REACTIONS (28)
  - INTERVERTEBRAL DISC DEGENERATION [None]
  - LYMPHADENOPATHY [None]
  - METASTASES TO BONE [None]
  - OSTEONECROSIS OF JAW [None]
  - PRIMARY SEQUESTRUM [None]
  - DECREASED INTEREST [None]
  - SPINAL PAIN [None]
  - DEPRESSION [None]
  - ARTHRALGIA [None]
  - ANXIETY [None]
  - ANAEMIA [None]
  - SPLENOMEGALY [None]
  - METASTASES TO SPINE [None]
  - CHEST PAIN [None]
  - HEPATIC STEATOSIS [None]
  - PAIN [None]
  - BREAST CANCER METASTATIC [None]
  - ATELECTASIS [None]
  - PAIN IN JAW [None]
  - DYSPNOEA [None]
  - DIVERTICULUM [None]
  - GENERAL PHYSICAL HEALTH DETERIORATION [None]
  - BREAST ENLARGEMENT [None]
  - THROMBOCYTOPENIA [None]
  - SYRINGOMYELIA [None]
  - EXPOSED BONE IN JAW [None]
  - TOOTH INFECTION [None]
  - ASTHMA [None]
